FAERS Safety Report 7463705-4 (Version None)
Quarter: 2011Q2

REPORT INFORMATION
  Report Type: 
  Country: None (occurrence: None)
  Receive Date: 20110506
  Receipt Date: 20110425
  Transmission Date: 20111010
  Serious: Yes (Hospitalization)
  Sender: FDA-Public Use
  Company Number: TR-BRISTOL-MYERS SQUIBB COMPANY-15696818

PATIENT
  Age: 77 Year
  Sex: Male

DRUGS (7)
  1. CYANOCOBALAMIN [Concomitant]
     Route: 048
  2. WARFARIN SODIUM [Suspect]
     Indication: CEREBROVASCULAR ACCIDENT
     Route: 048
  3. TAMSULOSIN HCL [Concomitant]
     Route: 048
  4. BILBERRY [Interacting]
  5. RAMIPRIL [Concomitant]
     Route: 048
  6. METOPROLOL SUCCINATE [Concomitant]
     Route: 048
  7. SIMVASTATIN [Concomitant]
     Route: 048

REACTIONS (4)
  - FOOD INTERACTION [None]
  - DIZZINESS [None]
  - HAEMATURIA [None]
  - RECTAL HAEMORRHAGE [None]
